FAERS Safety Report 22944868 (Version 3)
Quarter: 2024Q2

REPORT INFORMATION
  Report Type: Report from Study
  Country: US (occurrence: US)
  Receive Date: 20230914
  Receipt Date: 20240409
  Transmission Date: 20240715
  Serious: Yes (Hospitalization)
  Sender: FDA-Public Use
  Company Number: US-ABBVIE-5406211

PATIENT
  Sex: Male

DRUGS (2)
  1. DUOPA [Suspect]
     Active Substance: CARBIDOPA\LEVODOPA
     Indication: Parkinson^s disease
     Dosage: DOSE/ FREQUENCY: 1 CASSETTE VIA PEG-J FOR UP TO 16 HOURS EACH DAY. ?MORNING DOSE: 8ML, CONTINUOUS...
     Route: 050
     Dates: start: 202201
  2. DUOPA [Suspect]
     Active Substance: CARBIDOPA\LEVODOPA

REACTIONS (1)
  - Dyspnoea [Recovered/Resolved]
